FAERS Safety Report 5104821-1 (Version None)
Quarter: 2006Q3

REPORT INFORMATION
  Report Type: 
  Country: None (occurrence: None)
  Receive Date: 20060911
  Receipt Date: 20060828
  Transmission Date: 20061208
  Serious: Yes (Hospitalization)
  Sender: FDA-Public Use
  Company Number: 2006BI012233

PATIENT
  Sex: Female

DRUGS (1)
  1. AVONEX [Suspect]
     Indication: DRUG USE FOR UNKNOWN INDICATION
     Dosage: IM
     Route: 030
     Dates: start: 20030525, end: 20050101

REACTIONS (7)
  - DIABETES MELLITUS [None]
  - DIARRHOEA [None]
  - HAEMOGLOBIN DECREASED [None]
  - INFLUENZA [None]
  - LACERATION [None]
  - VIRAL INFECTION [None]
  - VOMITING [None]
